FAERS Safety Report 4424367-3 (Version None)
Quarter: 2004Q3

REPORT INFORMATION
  Report Type: 
  Country: None (occurrence: None)
  Receive Date: 20040810
  Receipt Date: 20040810
  Transmission Date: 20050211
  Serious: Yes (Life-Threatening)
  Sender: FDA-Public Use
  Company Number: None

PATIENT
  Age: 60 Year
  Sex: Female
  Weight: 61.2356 kg

DRUGS (1)
  1. QVAR 40 [Suspect]
     Indication: ASTHMA
     Dosage: 2 PUFF 2 TIMES
     Dates: start: 20030425, end: 20030425

REACTIONS (2)
  - ASTHMA [None]
  - CONDITION AGGRAVATED [None]
